FAERS Safety Report 17262071 (Version 1)
Quarter: 2020Q1

REPORT INFORMATION
  Report Type: Spontaneous
  Country: US (occurrence: US)
  Receive Date: 20200110
  Receipt Date: 20200110
  Transmission Date: 20200409
  Serious: Yes (Disabling)
  Sender: FDA-Public Use
  Company Number: None

PATIENT
  Age: 70 Year
  Sex: Female
  Weight: 65.7 kg

DRUGS (1)
  1. VALSARTAN 160MG MFG: AUROBINDO BATCH: VUSC18017-A EXP: 07/2021 [Suspect]
     Active Substance: VALSARTAN
     Indication: BLOOD PRESSURE INADEQUATELY CONTROLLED
     Dosage: ?          QUANTITY:1 TABLET(S);?
     Route: 048
     Dates: start: 20200101, end: 20200110

REACTIONS (4)
  - Therapy cessation [None]
  - Product quality issue [None]
  - Product complaint [None]
  - Hypertension [None]

NARRATIVE: CASE EVENT DATE: 20200108
